FAERS Safety Report 4959253-3 (Version None)
Quarter: 2006Q1

REPORT INFORMATION
  Report Type: 
  Country: None (occurrence: None)
  Receive Date: 20060331
  Receipt Date: 20060321
  Transmission Date: 20060701
  Serious: Yes (Other)
  Sender: FDA-Public Use
  Company Number: PHHO2006US04670

PATIENT
  Age: 59 Year
  Sex: Female
  Weight: 85 kg

DRUGS (1)
  1. ASM981 [Suspect]
     Indication: DERMATITIS ATOPIC
     Dosage: 20 MG, BID
     Route: 048

REACTIONS (3)
  - BASAL CELL CARCINOMA [None]
  - MELANOCYTIC NAEVUS [None]
  - SKIN NEOPLASM EXCISION [None]
